FAERS Safety Report 10263489 (Version 2)
Quarter: 2014Q2

REPORT INFORMATION
  Report Type: Spontaneous
  Country: US (occurrence: US)
  Receive Date: 20140626
  Receipt Date: 20140630
  Transmission Date: 20141212
  Serious: No
  Sender: FDA-Public Use
  Company Number: US-009507513-1406USA012625

PATIENT
  Age: 17 Year
  Sex: Female
  Weight: 81.63 kg

DRUGS (1)
  1. NEXPLANON [Suspect]
     Indication: MENSTRUATION IRREGULAR
     Dosage: 1 ROD EVERY 3 YEARS
     Route: 059
     Dates: start: 20140624

REACTIONS (2)
  - Implant site vesicles [Unknown]
  - Drug administration error [Unknown]
